FAERS Safety Report 7817587-9 (Version None)
Quarter: 2011Q4

REPORT INFORMATION
  Report Type: 
  Country: None (occurrence: None)
  Receive Date: 20111017
  Receipt Date: 20111010
  Transmission Date: 20120403
  Serious: Yes (Hospitalization, Other)
  Sender: FDA-Public Use
  Company Number: PHHY2011US50854

PATIENT
  Sex: Female
  Weight: 136.5 kg

DRUGS (2)
  1. EXTAVIA [Suspect]
     Indication: MULTIPLE SCLEROSIS
     Dosage: 0.25 MG, QOD
     Route: 058
     Dates: start: 20100716
  2. EXTAVIA [Suspect]
     Route: 058
     Dates: start: 20110606

REACTIONS (6)
  - CHEST PAIN [None]
  - ASTHMA [None]
  - HEPATOMEGALY [None]
  - SINUS HEADACHE [None]
  - SINUSITIS [None]
  - ABDOMINAL PAIN [None]
